FAERS Safety Report 14880982 (Version 1)
Quarter: 2018Q2

REPORT INFORMATION
  Report Type: Spontaneous
  Country: US (occurrence: US)
  Receive Date: 20180511
  Receipt Date: 20180511
  Transmission Date: 20180711
  Serious: Yes (Hospitalization, Other)
  Sender: FDA-Public Use
  Company Number: US-IMPAX LABORATORIES, INC-2018-IPXL-01542

PATIENT
  Sex: Female
  Weight: 68 kg

DRUGS (2)
  1. RYTARY [Suspect]
     Active Substance: CARBIDOPA\LEVODOPA
     Indication: PARKINSON^S DISEASE
     Dosage: 23.75/95 MG ONE CAPSULE FOUR TIMES A DAY
     Route: 065
  2. RYTARY [Suspect]
     Active Substance: CARBIDOPA\LEVODOPA
     Dosage: 48.75/195 MG ONE CAPSULE FOUR TIMES A DAY
     Route: 065

REACTIONS (8)
  - Pneumonia [Recovering/Resolving]
  - Influenza [Recovering/Resolving]
  - Memory impairment [Recovering/Resolving]
  - Laceration [Unknown]
  - Diplopia [Unknown]
  - Concussion [Recovering/Resolving]
  - Fall [Recovering/Resolving]
  - Tremor [Unknown]
